FAERS Safety Report 19765192 (Version 1)
Quarter: 2021Q3

REPORT INFORMATION
  Report Type: Report from Study
  Country: US (occurrence: US)
  Receive Date: 20210831
  Receipt Date: 20210831
  Transmission Date: 20211014
  Serious: Yes (Death)
  Sender: FDA-Public Use
  Company Number: US-ASTRAZENECA-2021A702168

PATIENT
  Age: 32382 Day

DRUGS (1)
  1. SYMBICORT [Suspect]
     Active Substance: BUDESONIDE\FORMOTEROL FUMARATE DIHYDRATE
     Dosage: INHALE 2 PUFFS BY MOUTH TWICE DAILY
     Route: 055
     Dates: start: 20210802, end: 20210822

REACTIONS (1)
  - Death [Fatal]

NARRATIVE: CASE EVENT DATE: 20210822
